FAERS Safety Report 10978511 (Version 4)
Quarter: 2016Q2

REPORT INFORMATION
  Report Type: Spontaneous
  Country: US (occurrence: US)
  Receive Date: 20150402
  Receipt Date: 20160408
  Transmission Date: 20160815
  Serious: Yes (Disabling, Other)
  Sender: FDA-Public Use
  Company Number: US-SA-2015SA014141

PATIENT
  Age: 56 Year
  Sex: Male

DRUGS (2)
  1. APIDRA [Suspect]
     Active Substance: INSULIN GLULISINE
     Indication: TYPE 1 DIABETES MELLITUS
     Route: 065
     Dates: start: 2012
  2. HUMALOG [Concomitant]
     Active Substance: INSULIN LISPRO

REACTIONS (11)
  - Injection site erythema [Unknown]
  - Blood glucose increased [Unknown]
  - Injection site reaction [Unknown]
  - Injection site scar [Unknown]
  - Incorrect product storage [Unknown]
  - Product quality issue [Unknown]
  - Neuropathy peripheral [Unknown]
  - Injection site pain [Unknown]
  - Disability [Unknown]
  - Dysstasia [Unknown]
  - Injection site urticaria [Unknown]
